FAERS Safety Report 21773999 (Version 1)
Quarter: 2022Q4

REPORT INFORMATION
  Report Type: Spontaneous
  Country: CN (occurrence: None)
  Receive Date: 20221223
  Receipt Date: 20221223
  Transmission Date: 20230113
  Serious: Yes (Hospitalization)
  Sender: FDA-Public Use
  Company Number: 2022A410706

PATIENT
  Age: 61 Year
  Sex: Female
  Weight: 43 kg

DRUGS (1)
  1. TAGRISSO [Suspect]
     Active Substance: OSIMERTINIB
     Indication: Lung adenocarcinoma
     Route: 048
     Dates: start: 20221010, end: 20221213

REACTIONS (1)
  - Tachyarrhythmia [Recovering/Resolving]

NARRATIVE: CASE EVENT DATE: 20221207
